FAERS Safety Report 11063774 (Version 1)
Quarter: 2015Q2

REPORT INFORMATION
  Report Type: Spontaneous
  Country: US (occurrence: US)
  Receive Date: 20150424
  Receipt Date: 20150424
  Transmission Date: 20150821
  Serious: No
  Sender: FDA-Public Use
  Company Number: US-TARO-2014P1002895

PATIENT
  Age: 57 Year
  Sex: Male
  Weight: 92.99 kg

DRUGS (4)
  1. NAPROXEN. [Concomitant]
     Active Substance: NAPROXEN
  2. VITAMINS [Concomitant]
     Active Substance: VITAMINS
  3. FLUOROURACIL TOPICAL CREAM USP 5% [Suspect]
     Active Substance: FLUOROURACIL
     Indication: ACTINIC KERATOSIS
     Dosage: BID
     Route: 061
     Dates: start: 20140321
  4. FLUOROURACIL TOPICAL CREAM USP 5% [Suspect]
     Active Substance: FLUOROURACIL
     Indication: BASAL CELL CARCINOMA

REACTIONS (3)
  - Wound secretion [Recovered/Resolved]
  - Application site scab [Recovered/Resolved]
  - Application site haemorrhage [Recovered/Resolved]

NARRATIVE: CASE EVENT DATE: 201403
